FAERS Safety Report 23496087 (Version 1)
Quarter: 2024Q1

REPORT INFORMATION
  Report Type: Spontaneous
  Country: US (occurrence: None)
  Receive Date: 20240207
  Receipt Date: 20240207
  Transmission Date: 20240410
  Serious: No
  Sender: FDA-Public Use
  Company Number: US-ROCHE-3292850

PATIENT
  Age: 73 Year
  Sex: Male

DRUGS (1)
  1. XOLAIR [Suspect]
     Active Substance: OMALIZUMAB
     Indication: Asthma
     Dosage: DOSE: INJECTIONS 150 MG 75 MG INJECTION (SELF INJECTING)
     Route: 058
     Dates: start: 201606

REACTIONS (1)
  - Sleep apnoea syndrome [Unknown]
